FAERS Safety Report 9828383 (Version 1)
Quarter: 2014Q1

REPORT INFORMATION
  Report Type: Spontaneous
  Country: NL (occurrence: NL)
  Receive Date: 20140117
  Receipt Date: 20140117
  Transmission Date: 20141002
  Serious: Yes (Life-Threatening, Hospitalization)
  Sender: FDA-Public Use
  Company Number: NL-WATSON-2014-00172

PATIENT
  Age: 55 Year
  Sex: Male
  Weight: 140 kg

DRUGS (13)
  1. MINOCYCLINE [Suspect]
     Indication: ABSCESS
     Dosage: 50 MG, BID
     Route: 048
     Dates: start: 20131212, end: 20131224
  2. GLIMEPIRIDE [Concomitant]
     Indication: PRODUCT USED FOR UNKNOWN INDICATION
     Dosage: 6 MG, DAILY; 2 TABLETS DAILY
     Route: 048
  3. ESOMEPRAZOL                        /01479302/ [Concomitant]
     Indication: PRODUCT USED FOR UNKNOWN INDICATION
     Dosage: 40 MG, DAILY; GASTRO-RESISTANT TABLET
     Route: 048
  4. ACETYLSALICYLZUUR [Concomitant]
     Indication: PRODUCT USED FOR UNKNOWN INDICATION
     Dosage: 80 MG, DAILY; CHEWABLE TABLET
     Route: 048
  5. IRBESARTAN [Concomitant]
     Indication: PRODUCT USED FOR UNKNOWN INDICATION
     Dosage: 150 MG, DAILY; TABLET
     Route: 048
  6. METOPROLOL SUCCINATE [Concomitant]
     Indication: PRODUCT USED FOR UNKNOWN INDICATION
     Dosage: 100 MG, DAILY; 2 PROLONGED-RELEASE TABLETS DAILY
     Route: 048
  7. METFORMINE [Concomitant]
     Indication: PRODUCT USED FOR UNKNOWN INDICATION
     Dosage: 1000 MG, BID; 2 TABLETS 2 TIMES A DAY
     Route: 048
  8. FUROSEMIDE [Concomitant]
     Indication: PRODUCT USED FOR UNKNOWN INDICATION
     Dosage: 40 MG, BID
     Route: 048
  9. NITROGLYCERINE [Concomitant]
     Indication: PRODUCT USED FOR UNKNOWN INDICATION
     Dosage: 1 DF, CYCLICAL; AS NEEDED; SUBLINGUAL SPRAY
     Route: 060
  10. LIRAGLUTIDE [Concomitant]
     Indication: PRODUCT USED FOR UNKNOWN INDICATION
     Dosage: 1.8 MG, DAILY; SOLUTION FOR INJECTION
     Route: 058
  11. HYDROXOCOBALAMINE [Concomitant]
     Indication: PRODUCT USED FOR UNKNOWN INDICATION
     Dosage: 1 DF, UNKNOWN; SOLUTION FOR INJECTION, ACCORDING TO SPECIFICATIONS
     Route: 030
  12. ISOSORBIDEMONONITRAAT [Concomitant]
     Indication: PRODUCT USED FOR UNKNOWN INDICATION
     Dosage: 50 MG, DAILY; PROLONGED-RELEASE CAPSULE
     Route: 048
     Dates: end: 20131224
  13. POVIDONE [Concomitant]
     Indication: PRODUCT USED FOR UNKNOWN INDICATION
     Dosage: 1 DF, PRN; IN BOTH EYES; EYE DROPS
     Route: 047
     Dates: end: 20131221

REACTIONS (1)
  - Ventricular tachyarrhythmia [Recovering/Resolving]
